FAERS Safety Report 11604174 (Version 1)
Quarter: 2015Q4

REPORT INFORMATION
  Report Type: Spontaneous
  Country: US (occurrence: US)
  Receive Date: 20151007
  Receipt Date: 20151007
  Transmission Date: 20160304
  Serious: No
  Sender: FDA-Public Use
  Company Number: US-AMGEN-USASP2015103246

PATIENT
  Sex: Female

DRUGS (1)
  1. ENBREL [Suspect]
     Active Substance: ETANERCEPT
     Indication: RHEUMATIC DISORDER
     Dosage: 50 MG, UNK
     Route: 065
     Dates: start: 2015

REACTIONS (4)
  - Erythema [Unknown]
  - Pain [Unknown]
  - Pyrexia [Unknown]
  - Skin reaction [Unknown]

NARRATIVE: CASE EVENT DATE: 2015
